FAERS Safety Report 12277055 (Version 1)
Quarter: 2016Q2

REPORT INFORMATION
  Report Type: Spontaneous
  Country: US (occurrence: US)
  Receive Date: 20160418
  Receipt Date: 20160418
  Transmission Date: 20160815
  Serious: Yes (Other)
  Sender: FDA-Public Use
  Company Number: US-CIPLA LTD.-2016US03798

PATIENT

DRUGS (4)
  1. TENOFOVIR/EMTRICITABINE [Suspect]
     Active Substance: EMTRICITABINE\TENOFOVIR
     Dosage: 200 MG EMTRICITABINE WITH 10 MG TENOFOVIR ALAFENAMIDE, ONCE A DAY WITHOUT REGARD TO FOOD
     Route: 048
  2. DARUNAVIR/RITONAVIR [Suspect]
     Active Substance: DARUNAVIR\RITONAVIR
     Indication: HIV INFECTION
     Dosage: UNK
     Route: 065
  3. TENOFOVIR/EMTRICITABINE [Suspect]
     Active Substance: EMTRICITABINE\TENOFOVIR
     Indication: HIV INFECTION
     Dosage: UNK, EMTRICITABINE WITH TENOFOVIR DISOPROXIL FUMARATE (PRIOR TO SWITCH)
     Route: 065
  4. PLACEBO [Suspect]
     Active Substance: UNSPECIFIED INGREDIENT
     Dosage: UNK
     Route: 065

REACTIONS (3)
  - Virologic failure [Unknown]
  - Drug resistance [Unknown]
  - Treatment noncompliance [Unknown]
